FAERS Safety Report 13743705 (Version 4)
Quarter: 2018Q1

REPORT INFORMATION
  Report Type: Spontaneous
  Country: PT (occurrence: GB)
  Receive Date: 20170711
  Receipt Date: 20180102
  Transmission Date: 20180508
  Serious: Yes (Other)
  Sender: FDA-Public Use
  Company Number: PT-SUNOVION-2017SUN003063

PATIENT

DRUGS (1)
  1. ZEBINIX [Suspect]
     Active Substance: ESLICARBAZEPINE ACETATE
     Indication: EPILEPSY
     Dosage: UNKNOWN
     Route: 065
     Dates: start: 201609

REACTIONS (12)
  - Tuberculosis [Unknown]
  - Rectal haemorrhage [Unknown]
  - Decreased appetite [Unknown]
  - Platelet count decreased [Unknown]
  - Weight decreased [Unknown]
  - Epistaxis [Unknown]
  - Eye infection [Unknown]
  - Full blood count decreased [Unknown]
  - Eye movement disorder [Unknown]
  - Pain [Unknown]
  - Blepharospasm [Unknown]
  - Somnolence [Unknown]
